FAERS Safety Report 25908613 (Version 1)
Quarter: 2025Q4

REPORT INFORMATION
  Report Type: Report from Study
  Country: US (occurrence: US)
  Receive Date: 20251010
  Receipt Date: 20251010
  Transmission Date: 20260117
  Serious: Yes (Other)
  Sender: APELLIS PHARMACEUTICALS
  Company Number: US-APELLIS-2025-APL-0001927

PATIENT

DRUGS (2)
  1. SYFOVRE [Suspect]
     Active Substance: PEGCETACOPLAN
     Indication: Dry age-related macular degeneration
     Dosage: 15 MG EVERY 25 DAYS, LEFT EYE
     Route: 031
     Dates: start: 20250819
  2. SYFOVRE [Suspect]
     Active Substance: PEGCETACOPLAN
     Dosage: 15 MG EVERY 25 DAYS, RIGHT EYE
     Route: 031
     Dates: start: 20250819

REACTIONS (2)
  - Eye haemorrhage [Unknown]
  - Eye discharge [Unknown]
